FAERS Safety Report 11739375 (Version 1)
Quarter: 2015Q4

REPORT INFORMATION
  Report Type: Report from Study
  Country: AU (occurrence: AU)
  Receive Date: 20151113
  Receipt Date: 20151113
  Transmission Date: 20160304
  Serious: Yes (Other)
  Sender: FDA-Public Use
  Company Number: AU-INCYTE CORPORATION-2015IN005907

PATIENT
  Sex: Male

DRUGS (2)
  1. JAKAFI [Suspect]
     Active Substance: RUXOLITINIB
     Indication: MYELOFIBROSIS
     Dosage: 15 MG, BID (TWICE DAILY)
     Route: 048
  2. JAKAFI [Suspect]
     Active Substance: RUXOLITINIB
     Dosage: 10 MG, BID (TWICE DAILY)
     Route: 048

REACTIONS (3)
  - Prostate cancer [Unknown]
  - Peripheral vascular disorder [Unknown]
  - Second primary malignancy [Unknown]
